FAERS Safety Report 7591618-6 (Version None)
Quarter: 2011Q3

REPORT INFORMATION
  Report Type: 
  Country: None (occurrence: None)
  Receive Date: 20110701
  Receipt Date: 20110701
  Transmission Date: 20111222
  Serious: Yes (Hospitalization)
  Sender: FDA-Public Use
  Company Number: None

PATIENT
  Sex: Male
  Weight: 2.85 kg

DRUGS (3)
  1. CARBOPLATIN [Suspect]
     Dosage: 53 MG
  2. G-CSF (FILGRASTIM, AMGEN) [Suspect]
     Dosage: 15 MCG
  3. ETOPOSIDE [Suspect]
     Dosage: 12 MG

REACTIONS (2)
  - HEPATIC CIRRHOSIS [None]
  - PORTAL HYPERTENSION [None]
